FAERS Safety Report 15181467 (Version 1)
Quarter: 2018Q3

REPORT INFORMATION
  Report Type: Spontaneous
  Country: US (occurrence: US)
  Receive Date: 20180723
  Receipt Date: 20180723
  Transmission Date: 20181010
  Serious: Yes (Hospitalization)
  Sender: FDA-Public Use
  Company Number: US-ZYDUS-020869

PATIENT
  Age: 48 Year
  Sex: Male

DRUGS (3)
  1. TESTOSTERONE. [Interacting]
     Active Substance: TESTOSTERONE
     Indication: PERFORMANCE ENHANCING PRODUCT USE
     Route: 065
  2. AMPHETAMINE\DEXTROAMPHETAMINE [Suspect]
     Active Substance: AMPHETAMINE\DEXTROAMPHETAMINE
     Indication: PERFORMANCE ENHANCING PRODUCT USE
     Route: 065
  3. CAFFEINE/CAFFEINE CITRATE [Interacting]
     Active Substance: CAFFEINE CITRATE
     Indication: PRODUCT USED FOR UNKNOWN INDICATION
     Dosage: SEVEN ESPRESSOS EACH MORNING (APPROXIMATELY 560MG OF CAFFEINE) INSTEAD OF HIS USUAL ONE CUP DAILY
     Route: 048

REACTIONS (9)
  - Irritability [Recovered/Resolved]
  - Cortisol increased [Unknown]
  - Social avoidant behaviour [Recovered/Resolved]
  - Blood testosterone increased [Unknown]
  - Impaired work ability [Recovered/Resolved]
  - Psychotic disorder [Recovered/Resolved]
  - Intentional product misuse [Unknown]
  - Delusion [Recovered/Resolved]
  - Drug interaction [Unknown]
